FAERS Safety Report 17717692 (Version 2)
Quarter: 2020Q2

REPORT INFORMATION
  Report Type: Spontaneous
  Country: US (occurrence: US)
  Receive Date: 20200428
  Receipt Date: 20200610
  Transmission Date: 20200714
  Serious: Yes (Other)
  Sender: FDA-Public Use
  Company Number: US-VERTEX PHARMACEUTICALS-2020-009339

PATIENT
  Age: 19 Year
  Sex: Male
  Weight: 75 kg

DRUGS (5)
  1. TRIKAFTA [Suspect]
     Active Substance: ELEXACAFTOR\IVACAFTOR\TEZACAFTOR
     Indication: CYSTIC FIBROSIS
     Dosage: 100MG ELEXACAFTOR/50MG TEZACAFTOR/75MG IVACAFTOR AND 150MG IVACAFTOR (UNKNOWN FREQUENCY)
     Route: 048
     Dates: start: 20191129, end: 20200407
  2. XOPENEX [Concomitant]
     Active Substance: LEVALBUTEROL HYDROCHLORIDE
     Dosage: UNK
  3. ZONISAMIDE. [Concomitant]
     Active Substance: ZONISAMIDE
     Dosage: UNK
  4. PANCREASE [PANCREATIN] [Concomitant]
     Dosage: UNK
  5. HYPERTONIC SALINE SOLUTION [Concomitant]
     Active Substance: SODIUM CHLORIDE
     Dosage: UNK

REACTIONS (17)
  - Sleep disorder [Unknown]
  - Mood altered [Unknown]
  - Headache [Unknown]
  - Hepatic enzyme increased [Recovered/Resolved]
  - Myalgia [Unknown]
  - Fatigue [Unknown]
  - Pain [Unknown]
  - Depression [Unknown]
  - Anxiety [Unknown]
  - Anhedonia [Unknown]
  - Aggression [Recovered/Resolved]
  - Blood creatine phosphokinase increased [Unknown]
  - Food refusal [Unknown]
  - Bipolar disorder [Unknown]
  - Blood testosterone increased [Unknown]
  - Seizure [Unknown]
  - Lethargy [Unknown]

NARRATIVE: CASE EVENT DATE: 201912
